FAERS Safety Report 5755611-8 (Version None)
Quarter: 2008Q2

REPORT INFORMATION
  Report Type: 
  Country: None (occurrence: None)
  Receive Date: 20080530
  Receipt Date: 20080530
  Transmission Date: 20081010
  Serious: Yes (Life-Threatening, Hospitalization)
  Sender: FDA-Public Use
  Company Number: None

PATIENT
  Age: 43 Year
  Sex: Female

DRUGS (1)
  1. VISIPAQUE 320 [Suspect]
     Indication: PULMONARY EMBOLISM
     Dosage: 75 ML ONCE IV  (DURATION: ONE TIME)
     Route: 042
     Dates: start: 20080318, end: 20080318

REACTIONS (1)
  - ANAPHYLACTIC REACTION [None]
